FAERS Safety Report 5807188-6 (Version None)
Quarter: 2008Q3

REPORT INFORMATION
  Report Type: 
  Country: None (occurrence: None)
  Receive Date: 20080711
  Receipt Date: 20080701
  Transmission Date: 20090109
  Serious: Yes (Other)
  Sender: FDA-Public Use
  Company Number: B0361262A

PATIENT
  Age: 33 Year
  Sex: Female

DRUGS (3)
  1. PAROXETINE HCL [Suspect]
     Indication: ANXIETY
     Route: 065
     Dates: start: 19981021
  2. TRAZODONE HCL [Concomitant]
     Dosage: 50MG PER DAY
     Route: 065
  3. MOLIPAXIN [Concomitant]
     Dates: start: 20011126

REACTIONS (27)
  - ABNORMAL SENSATION IN EYE [None]
  - AGGRESSION [None]
  - ALCOHOL USE [None]
  - ANGER [None]
  - ANOREXIA [None]
  - DEJA VU [None]
  - DELUSION [None]
  - DISTURBANCE IN ATTENTION [None]
  - DIZZINESS [None]
  - DRUG WITHDRAWAL SYNDROME [None]
  - INSOMNIA [None]
  - INTENTIONAL SELF-INJURY [None]
  - IRRITABILITY [None]
  - MALAISE [None]
  - MOOD ALTERED [None]
  - MOOD SWINGS [None]
  - NAUSEA [None]
  - OVERDOSE [None]
  - PAIN [None]
  - SELF-INJURIOUS IDEATION [None]
  - SUICIDAL IDEATION [None]
  - SUICIDE ATTEMPT [None]
  - SUSPICIOUSNESS [None]
  - TEARFULNESS [None]
  - TREMOR [None]
  - VOMITING [None]
  - WEIGHT INCREASED [None]
